FAERS Safety Report 16656307 (Version 1)
Quarter: 2019Q3

REPORT INFORMATION
  Report Type: Spontaneous
  Country: US (occurrence: US)
  Receive Date: 20190801
  Receipt Date: 20190801
  Transmission Date: 20191004
  Serious: No
  Sender: FDA-Public Use
  Company Number: US-PACIRA-201500149

PATIENT
  Sex: Female

DRUGS (2)
  1. EXPAREL [Suspect]
     Active Substance: BUPIVACAINE
  2. EXPAREL [Suspect]
     Active Substance: BUPIVACAINE
     Dosage: 266 MG, INJECTION INTO DEEP BREAST TISSUE AROUND THE PARTIAL MASTECTOMY CAVITY, FREQUENCY : 1X
     Route: 065

REACTIONS (1)
  - Erythema [Recovered/Resolved]
